FAERS Safety Report 6323490-6 (Version None)
Quarter: 2009Q3

REPORT INFORMATION
  Report Type: 
  Country: None (occurrence: None)
  Receive Date: 20090824
  Receipt Date: 20090612
  Transmission Date: 20100115
  Serious: No
  Sender: FDA-Public Use
  Company Number: US-ABBOTT-09P-163-0579751-00

PATIENT
  Sex: Female
  Weight: 63.56 kg

DRUGS (10)
  1. NIASPAN [Suspect]
     Indication: BLOOD CHOLESTEROL
     Dosage: TOOK 2 DOSES
  2. NIASPAN [Suspect]
  3. NIASPAN [Suspect]
  4. ASPIRIN [Concomitant]
     Indication: DRUG USE FOR UNKNOWN INDICATION
  5. FOLTEC [Concomitant]
     Indication: DRUG USE FOR UNKNOWN INDICATION
     Dosage: 2.5/25/2 MG
  6. PLAVIX [Concomitant]
     Indication: DRUG USE FOR UNKNOWN INDICATION
  7. LYRICA [Concomitant]
     Indication: PAIN
  8. CARAFATE [Concomitant]
     Indication: DRUG USE FOR UNKNOWN INDICATION
  9. PRILOSEC [Concomitant]
     Indication: DRUG USE FOR UNKNOWN INDICATION
  10. CITALOPRAM [Concomitant]
     Indication: DRUG USE FOR UNKNOWN INDICATION

REACTIONS (2)
  - PRURITUS [None]
  - SKIN BURNING SENSATION [None]
